FAERS Safety Report 12862423 (Version 1)
Quarter: 2016Q4

REPORT INFORMATION
  Report Type: Spontaneous
  Country: US (occurrence: US)
  Receive Date: 20161019
  Receipt Date: 20161019
  Transmission Date: 20170207
  Serious: Yes (Other)
  Sender: FDA-Public Use
  Company Number: US-WARNER CHILCOTT, LLC-1058523

PATIENT
  Age: 69 Year
  Sex: Female

DRUGS (1)
  1. ESTRACE [Suspect]
     Active Substance: ESTRADIOL

REACTIONS (7)
  - Kidney infection [Recovered/Resolved]
  - Vaginal cyst [Not Recovered/Not Resolved]
  - Vaginal infection [Recovered/Resolved]
  - Genital pain [Recovered/Resolved]
  - Vulvovaginal mycotic infection [Recovered/Resolved]
  - Application site discharge [Unknown]
  - Cystitis [Recovered/Resolved]

NARRATIVE: CASE EVENT DATE: 201609
